FAERS Safety Report 6145886-8 (Version None)
Quarter: 2009Q2

REPORT INFORMATION
  Report Type: 
  Country: None (occurrence: None)
  Receive Date: 20090403
  Receipt Date: 20090323
  Transmission Date: 20091009
  Serious: Yes (Hospitalization)
  Sender: FDA-Public Use
  Company Number: 1000003927

PATIENT
  Age: 68 Year
  Sex: Male

DRUGS (7)
  1. MEMANTINE HCL [Suspect]
     Indication: DEMENTIA ALZHEIMER'S TYPE
     Dosage: ORAL
     Route: 048
     Dates: start: 20080901
  2. MEMANTINE HCL [Suspect]
     Indication: DEMENTIA ALZHEIMER'S TYPE
     Dosage: 20 MG (10 MG, 2 IN 1 D), ORAL
     Route: 048
     Dates: end: 20090127
  3. DONEPEZIL HCL [Concomitant]
  4. ASPIRIN [Concomitant]
  5. CITALOPRAM (TABLETS) [Concomitant]
  6. ALPRAZOLAM [Concomitant]
  7. LEVOSULPIRIDE (SOLUTION) [Concomitant]

REACTIONS (8)
  - APHASIA [None]
  - DYSKINESIA [None]
  - EPILEPSY [None]
  - HEART RATE DECREASED [None]
  - LEUKOCYTOSIS [None]
  - MEMORY IMPAIRMENT [None]
  - MINI MENTAL STATUS EXAMINATION ABNORMAL [None]
  - NEUTROPHILIA [None]
